FAERS Safety Report 15562804 (Version 2)
Quarter: 2019Q2

REPORT INFORMATION
  Report Type: Spontaneous
  Country: US (occurrence: US)
  Receive Date: 20181029
  Receipt Date: 20190412
  Transmission Date: 20190711
  Serious: Yes (Hospitalization)
  Sender: FDA-Public Use
  Company Number: US-SA-2018SA297880

PATIENT
  Age: 69 Year
  Sex: Female

DRUGS (4)
  1. ASPIRIN [ACETYLSALICYLIC ACID] [Concomitant]
     Active Substance: ASPIRIN
     Dosage: UNK
  2. PRALUENT [Suspect]
     Active Substance: ALIROCUMAB
     Indication: TYPE IIA HYPERLIPIDAEMIA
     Dosage: 75 MG, QOW
     Route: 058
     Dates: start: 20171129
  3. ASPIRIN [ACETYLSALICYLIC ACID] [Concomitant]
     Active Substance: ASPIRIN
     Dosage: 324 MG, QD
  4. NIACIN. [Concomitant]
     Active Substance: NIACIN

REACTIONS (3)
  - Low density lipoprotein increased [Unknown]
  - Paraesthesia oral [Unknown]
  - Diplopia [Unknown]

NARRATIVE: CASE EVENT DATE: 20181022
